FAERS Safety Report 7455617-7 (Version None)
Quarter: 2011Q2

REPORT INFORMATION
  Report Type: 
  Country: None (occurrence: None)
  Receive Date: 20110503
  Receipt Date: 20110427
  Transmission Date: 20111010
  Serious: Yes (Other)
  Sender: FDA-Public Use
  Company Number: AU-ROCHE-773992

PATIENT
  Age: 61 Year
  Sex: Female

DRUGS (3)
  1. PREDNISOLONE [Suspect]
     Dosage: DOSE: UNSPECIFIED
     Route: 065
  2. MYCOPHENOLATE MOFETIL [Suspect]
     Dosage: DOSE: UNSPECIFIED
     Route: 065
  3. CYCLOSPORINE [Suspect]
     Dosage: DOSE: UNSPECIFIED
     Route: 065

REACTIONS (3)
  - POSTERIOR REVERSIBLE ENCEPHALOPATHY SYNDROME [None]
  - GRAFT DYSFUNCTION [None]
  - ATRIAL FIBRILLATION [None]
